FAERS Safety Report 20070131 (Version 1)
Quarter: 2021Q4

REPORT INFORMATION
  Report Type: Spontaneous
  Country: US (occurrence: US)
  Receive Date: 20211115
  Receipt Date: 20211115
  Transmission Date: 20220303
  Serious: Yes (Hospitalization, Other)
  Sender: FDA-Public Use
  Company Number: US-AZURITY PHARMACEUTICALS, INC.-2021AZY00118

PATIENT
  Age: 31 Year
  Sex: Female
  Weight: 61.224 kg

DRUGS (2)
  1. FIRVANQ [Suspect]
     Active Substance: VANCOMYCIN HYDROCHLORIDE
     Indication: Clostridium difficile infection
     Dosage: 125 MG, 4X/DAY
     Route: 048
     Dates: start: 202107, end: 2021
  2. FIRVANQ [Suspect]
     Active Substance: VANCOMYCIN HYDROCHLORIDE
     Dosage: 125 MG, 4X/DAY
     Route: 048
     Dates: start: 2021, end: 20210814

REACTIONS (7)
  - Gastric disorder [Recovering/Resolving]
  - Intestinal haemorrhage [Recovering/Resolving]
  - Clostridium difficile colitis [Not Recovered/Not Resolved]
  - Hypoaesthesia [Recovered/Resolved]
  - Neuralgia [Unknown]
  - Drug ineffective [Recovered/Resolved]
  - Recalled product administered [Recovered/Resolved]

NARRATIVE: CASE EVENT DATE: 20210701
